FAERS Safety Report 14646325 (Version 2)
Quarter: 2018Q3

REPORT INFORMATION
  Report Type: Spontaneous
  Country: FR (occurrence: FR)
  Receive Date: 20180316
  Receipt Date: 20180823
  Transmission Date: 20181010
  Serious: Yes (Hospitalization, Other)
  Sender: FDA-Public Use
  Company Number: FR-ROCHE-2091284

PATIENT
  Age: 65 Year
  Sex: Male

DRUGS (8)
  1. PREDNISONE. [Suspect]
     Active Substance: PREDNISONE
     Route: 065
  2. IBRUTINIB [Interacting]
     Active Substance: IBRUTINIB
     Route: 048
  3. IBRUTINIB [Interacting]
     Active Substance: IBRUTINIB
     Indication: CHRONIC LYMPHOCYTIC LEUKAEMIA
     Route: 048
  4. VORICONAZOLE. [Interacting]
     Active Substance: VORICONAZOLE
     Indication: CEREBRAL ASPERGILLOSIS
     Route: 048
  5. RITUXIMAB. [Suspect]
     Active Substance: RITUXIMAB
     Indication: CHRONIC LYMPHOCYTIC LEUKAEMIA
     Route: 065
  6. VORICONAZOLE. [Interacting]
     Active Substance: VORICONAZOLE
     Indication: BRONCHOPULMONARY ASPERGILLOSIS
  7. IBRUTINIB [Interacting]
     Active Substance: IBRUTINIB
     Route: 048
  8. PREDNISONE. [Suspect]
     Active Substance: PREDNISONE
     Indication: CHRONIC LYMPHOCYTIC LEUKAEMIA
     Route: 065

REACTIONS (11)
  - Balance disorder [Recovered/Resolved]
  - Pleural effusion [Recovering/Resolving]
  - Dyspnoea [Recovered/Resolved]
  - Hemiparesis [Recovered/Resolved]
  - Drug interaction [Unknown]
  - Pulmonary alveolar haemorrhage [Unknown]
  - Cough [Recovered/Resolved]
  - Dizziness [Recovered/Resolved]
  - Pulmonary mass [Unknown]
  - Cerebral aspergillosis [Recovering/Resolving]
  - Bronchopulmonary aspergillosis [Recovering/Resolving]
